FAERS Safety Report 7362759-3 (Version None)
Quarter: 2011Q1

REPORT INFORMATION
  Report Type: 
  Country: None (occurrence: None)
  Receive Date: 20110321
  Receipt Date: 20110311
  Transmission Date: 20110831
  Serious: No
  Sender: FDA-Public Use
  Company Number: US-BIOGENIDEC-2010BI040101

PATIENT
  Age: 54 Year
  Sex: Female

DRUGS (1)
  1. TYSABRI [Suspect]
     Indication: MULTIPLE SCLEROSIS
     Route: 042
     Dates: start: 20100329

REACTIONS (9)
  - BALANCE DISORDER [None]
  - DIZZINESS [None]
  - VAGINAL INFECTION [None]
  - FLUSHING [None]
  - MYALGIA [None]
  - CHROMATURIA [None]
  - URINARY TRACT INFECTION [None]
  - GAIT DISTURBANCE [None]
  - ARTHRALGIA [None]
